FAERS Safety Report 7488260-4 (Version None)
Quarter: 2011Q2

REPORT INFORMATION
  Report Type: 
  Country: None (occurrence: None)
  Receive Date: 20110511
  Receipt Date: 20110426
  Transmission Date: 20111010
  Serious: Yes (Other)
  Sender: FDA-Public Use
  Company Number: 030684

PATIENT
  Sex: Male
  Weight: 79.2 kg

DRUGS (6)
  1. VALPROIC ACID [Concomitant]
  2. KEPPRA [Suspect]
     Indication: EPILEPSY
     Dosage: 17.5 ML, 7.5-0-10 ML VIA PEG TUBE), (DOSE REDUCED)
     Dates: start: 20110303
  3. KEPPRA [Suspect]
     Indication: EPILEPSY
     Dosage: 17.5 ML, 7.5-0-10 ML VIA PEG TUBE), (DOSE REDUCED)
     Dates: start: 20110214, end: 20110302
  4. LAMOTRIGINE [Concomitant]
  5. LACOSAMIDE [Concomitant]
  6. TOPIRAMATE [Concomitant]

REACTIONS (2)
  - SEDATION [None]
  - FATIGUE [None]
